FAERS Safety Report 5275390-0 (Version None)
Quarter: 2007Q1

REPORT INFORMATION
  Report Type: 
  Country: None (occurrence: None)
  Receive Date: 20070326
  Receipt Date: 20070312
  Transmission Date: 20070707
  Serious: Yes (Other)
  Sender: FDA-Public Use
  Company Number: PHFR2007GB01034

PATIENT
  Age: 32 Year
  Sex: Female

DRUGS (1)
  1. TEGRETOL [Suspect]
     Indication: MOOD ALTERED
     Dosage: 600MG NOCTE
     Route: 048

REACTIONS (3)
  - CONDITION AGGRAVATED [None]
  - MENORRHAGIA [None]
  - PREMENSTRUAL SYNDROME [None]
